FAERS Safety Report 7124190-5 (Version None)
Quarter: 2010Q4

REPORT INFORMATION
  Report Type: 
  Country: None (occurrence: None)
  Receive Date: 20101126
  Receipt Date: 20101123
  Transmission Date: 20110411
  Serious: Yes (Death)
  Sender: FDA-Public Use
  Company Number: ES-BRISTOL-MYERS SQUIBB COMPANY-15401938

PATIENT
  Age: 31 Year
  Sex: Male

DRUGS (1)
  1. ABILIFY [Suspect]
     Dates: start: 20100101

REACTIONS (1)
  - SUDDEN DEATH [None]
